FAERS Safety Report 9196307 (Version 2)
Quarter: 2013Q2

REPORT INFORMATION
  Report Type: Spontaneous
  Country: US (occurrence: US)
  Receive Date: 20130328
  Receipt Date: 20130508
  Transmission Date: 20140414
  Serious: Yes (Other)
  Sender: FDA-Public Use
  Company Number: US-ASTELLAS-2013US003275

PATIENT
  Age: 38 Year
  Sex: Female
  Weight: 98 kg

DRUGS (2)
  1. PROGRAF [Suspect]
     Indication: RENAL TRANSPLANT
     Dosage: 2.5 MG, BID
     Route: 048
  2. CELLCEPT                           /01275102/ [Concomitant]
     Indication: RENAL TRANSPLANT
     Dosage: UNK
     Route: 065

REACTIONS (4)
  - Renal transplant [Unknown]
  - Nephrolithiasis [Unknown]
  - Transplant [Unknown]
  - Transplant failure [Unknown]
